FAERS Safety Report 12494180 (Version 1)
Quarter: 2016Q2

REPORT INFORMATION
  Report Type: Spontaneous
  Country: US (occurrence: US)
  Receive Date: 20160623
  Receipt Date: 20160623
  Transmission Date: 20160815
  Serious: No
  Sender: FDA-Public Use
  Company Number: US-AQUA PHARMACEUTICALS-2015AQU000077

PATIENT
  Sex: Female

DRUGS (1)
  1. CORDRAN [Suspect]
     Active Substance: FLURANDRENOLIDE
     Indication: PRODUCT USED FOR UNKNOWN INDICATION
     Dosage: UNK
     Route: 050
     Dates: start: 20151119

REACTIONS (2)
  - Vision blurred [Recovering/Resolving]
  - Incorrect route of drug administration [Recovering/Resolving]

NARRATIVE: CASE EVENT DATE: 20151119
